FAERS Safety Report 11096208 (Version 2)
Quarter: 2016Q1

REPORT INFORMATION
  Report Type: Spontaneous
  Country: US (occurrence: US)
  Receive Date: 20150507
  Receipt Date: 20160112
  Transmission Date: 20160525
  Serious: No
  Sender: FDA-Public Use
  Company Number: US-BAYER-2015-191176

PATIENT
  Age: 24 Year
  Sex: Female

DRUGS (2)
  1. MIRENA [Suspect]
     Active Substance: LEVONORGESTREL
     Indication: CONTRACEPTION
     Dosage: 20 MCG/24HR, CONT
     Route: 015
     Dates: start: 201004, end: 2013
  2. MIRENA [Suspect]
     Active Substance: LEVONORGESTREL
     Indication: CONTRACEPTION
     Dosage: 20 MCG/24HR, CONT
     Route: 015
     Dates: start: 20150122, end: 20160106

REACTIONS (12)
  - Device use error [None]
  - Muscular weakness [Not Recovered/Not Resolved]
  - Device expulsion [None]
  - Pyrexia [Not Recovered/Not Resolved]
  - Medical device discomfort [None]
  - Device expulsion [None]
  - Pain [None]
  - Limb discomfort [Not Recovered/Not Resolved]
  - Discomfort [None]
  - Abdominal pain upper [None]
  - Chills [Not Recovered/Not Resolved]
  - Dysuria [None]

NARRATIVE: CASE EVENT DATE: 2010
